FAERS Safety Report 19245737 (Version 1)
Quarter: 2021Q2

REPORT INFORMATION
  Report Type: Spontaneous
  Country: CN (occurrence: CN)
  Receive Date: 20210511
  Receipt Date: 20210511
  Transmission Date: 20210717
  Serious: Yes (Other)
  Sender: FDA-Public Use
  Company Number: CN-BAXTER-2021BAX010099

PATIENT
  Age: 68 Year
  Sex: Male
  Weight: 53 kg

DRUGS (4)
  1. ENDOXAN [Suspect]
     Active Substance: CYCLOPHOSPHAMIDE
     Indication: MALIGNANT LYMPHOID NEOPLASM
     Dosage: FIRST TWO CYCLES OF CYCLOPHOSPHAMIDE + 0.9 % SODIUM CHLORIDE
     Route: 041
  2. 0.9% SODIUM CHLORIDE INJECTION [Suspect]
     Active Substance: SODIUM CHLORIDE
     Dosage: 3RD CYCLE OF CHEMOTHERAPY, 0.9% SODIUM CHLORIDE + CYCLOPHOSPHAMIDE
     Route: 041
     Dates: start: 20210404, end: 20210404
  3. 0.9% SODIUM CHLORIDE INJECTION [Suspect]
     Active Substance: SODIUM CHLORIDE
     Indication: MEDICATION DILUTION
     Dosage: FIRST TWO CYCLES OF CHEMOTHERAPY, 0.9% SODIUM CHLORIDE + CYCLOPHOSPHAMIDE
     Route: 041
  4. ENDOXAN [Suspect]
     Active Substance: CYCLOPHOSPHAMIDE
     Dosage: 3RD CYCLE OF CYCLOPHOSPHAMIDE + 0.9 % SODIUM CHLORIDE 100 ML
     Route: 041
     Dates: start: 20210404, end: 20210404

REACTIONS (2)
  - White blood cell count decreased [Recovered/Resolved]
  - Myelosuppression [Recovering/Resolving]

NARRATIVE: CASE EVENT DATE: 20210422
